FAERS Safety Report 9068392 (Version 1)
Quarter: 2013Q1

REPORT INFORMATION
  Report Type: Spontaneous
  Country: IT (occurrence: IT)
  Receive Date: 20130128
  Receipt Date: 20130128
  Transmission Date: 20140127
  Serious: Yes (Hospitalization)
  Sender: FDA-Public Use
  Company Number: IT-ASTRAZENECA-2013SE04982

PATIENT
  Age: 17360 Day
  Sex: Female

DRUGS (2)
  1. SINESTIC [Suspect]
     Indication: ASTHMA
     Dosage: 160/4.5 MCG TURBOHALER 120 DOSES 2 DF DAILY
     Route: 055
     Dates: start: 20120501, end: 20120511
  2. AERIUS [Concomitant]
     Route: 048

REACTIONS (1)
  - Supraventricular tachycardia [Recovered/Resolved]
